FAERS Safety Report 9870120 (Version 3)
Quarter: 2014Q2

REPORT INFORMATION
  Report Type: Spontaneous
  Country: US (occurrence: US)
  Receive Date: 20140205
  Receipt Date: 20140403
  Transmission Date: 20141212
  Serious: Yes (Other)
  Sender: FDA-Public Use
  Company Number: US-TEVA-459903USA

PATIENT
  Age: 37 Year
  Sex: Female

DRUGS (6)
  1. COPAXONE [Suspect]
     Indication: MULTIPLE SCLEROSIS
     Dates: start: 20111224, end: 201401
  2. EFFEXOR [Concomitant]
  3. NEURONTIN [Concomitant]
  4. ASTEPRO [Concomitant]
     Dosage: PRN
  5. BACLOFEN [Concomitant]
  6. VITAMIN D [Concomitant]

REACTIONS (5)
  - Multiple sclerosis [Not Recovered/Not Resolved]
  - Central nervous system lesion [Not Recovered/Not Resolved]
  - Multiple sclerosis relapse [Recovered/Resolved]
  - Gait disturbance [Unknown]
  - Balance disorder [Unknown]
